FAERS Safety Report 17959589 (Version 7)
Quarter: 2021Q3

REPORT INFORMATION
  Report Type: Report from Study
  Country: JP (occurrence: JP)
  Receive Date: 20200629
  Receipt Date: 20210812
  Transmission Date: 20211014
  Serious: Yes (Hospitalization, Other)
  Sender: FDA-Public Use
  Company Number: JP-PFIZER INC-2019-06901

PATIENT
  Age: 60 Year
  Sex: Female
  Weight: 52.5 kg

DRUGS (32)
  1. BRAFTOVI [Suspect]
     Active Substance: ENCORAFENIB
     Indication: MALIGNANT MELANOMA
     Dosage: 450 MG, EVERYDAY
     Route: 048
     Dates: start: 20191127, end: 20191207
  2. DABRAFENIB MESILATE [Suspect]
     Active Substance: DABRAFENIB MESYLATE
     Dosage: UNK
     Route: 065
     Dates: end: 20191105
  3. FAMOTIDINE. [Concomitant]
     Active Substance: FAMOTIDINE
     Indication: GASTRITIS PROPHYLAXIS
     Dosage: UNK
     Route: 048
  4. BRAFTOVI [Suspect]
     Active Substance: ENCORAFENIB
     Dosage: 300 MG, EVERYDAY
     Route: 048
     Dates: start: 20200511, end: 20201126
  5. PREDNISOLONE. [Suspect]
     Active Substance: PREDNISOLONE
     Indication: BLOOD LACTATE DEHYDROGENASE INCREASED
     Dosage: 10 MG
     Route: 048
     Dates: start: 20200107, end: 20200119
  6. LIXIANA [Concomitant]
     Active Substance: EDOXABAN TOSYLATE
     Indication: PROPHYLAXIS
     Dosage: UNK
     Route: 048
  7. MEKTOVI [Suspect]
     Active Substance: BINIMETINIB
     Indication: MALIGNANT MELANOMA
     Dosage: 90 MG, EVERYDAY
     Route: 048
     Dates: start: 20191127, end: 20191207
  8. MEKTOVI [Suspect]
     Active Substance: BINIMETINIB
     Dosage: 30 MG, Q12H
     Route: 048
     Dates: start: 20200205, end: 20200330
  9. TRAMETINIB DIMETHYL SULFOXIDE [Suspect]
     Active Substance: TRAMETINIB DIMETHYL SULFOXIDE
     Indication: MALIGNANT MELANOMA
     Dosage: 2 MG, EVERYDAY
     Route: 065
     Dates: start: 20190820, end: 20190910
  10. PREDNISOLONE. [Suspect]
     Active Substance: PREDNISOLONE
     Indication: DIARRHOEA
     Dosage: 25 MG
     Route: 048
     Dates: start: 20190910, end: 20190916
  11. PREDNISOLONE. [Suspect]
     Active Substance: PREDNISOLONE
     Indication: PYREXIA
     Dosage: 20 MG
     Route: 048
     Dates: start: 20190917, end: 20191216
  12. BASEN [VOGLIBOSE] [Suspect]
     Active Substance: VOGLIBOSE
     Indication: STEROID DIABETES
     Dosage: UNK
     Route: 048
  13. JANUVIA [Concomitant]
     Active Substance: SITAGLIPTIN PHOSPHATE
     Indication: STEROID DIABETES
     Dosage: UNK
     Route: 048
  14. BAKTAR [Concomitant]
     Active Substance: SULFAMETHOXAZOLE\TRIMETHOPRIM
     Indication: INFECTION PROPHYLAXIS
     Dosage: UNK
     Route: 048
  15. TRAMETINIB DIMETHYL SULFOXIDE [Suspect]
     Active Substance: TRAMETINIB DIMETHYL SULFOXIDE
     Dosage: UNK
     Route: 065
     Dates: end: 20191105
  16. MEKTOVI [Suspect]
     Active Substance: BINIMETINIB
     Dosage: 30 MG, Q12H
     Route: 048
     Dates: start: 20200107, end: 20200122
  17. MEKTOVI [Suspect]
     Active Substance: BINIMETINIB
     Dosage: 45 MG, Q12H
     Route: 048
     Dates: start: 20200331, end: 20200428
  18. BRAFTOVI [Suspect]
     Active Substance: ENCORAFENIB
     Dosage: 300 MG, EVERYDAY
     Route: 048
     Dates: start: 20200205, end: 20200330
  19. DABRAFENIB MESILATE [Suspect]
     Active Substance: DABRAFENIB MESYLATE
     Indication: MALIGNANT MELANOMA
     Dosage: 300 MG, EVERYDAY
     Route: 065
     Dates: start: 20190820, end: 20190910
  20. TRAMETINIB DIMETHYL SULFOXIDE [Suspect]
     Active Substance: TRAMETINIB DIMETHYL SULFOXIDE
     Dosage: 1.5 MG, EVERYDAY
     Route: 065
     Dates: start: 20190917, end: 2019
  21. BRAFTOVI [Suspect]
     Active Substance: ENCORAFENIB
     Dosage: 300 MG, EVERYDAY
     Route: 048
     Dates: start: 20200503, end: 20200507
  22. OPDIVO [Suspect]
     Active Substance: NIVOLUMAB
     Indication: MALIGNANT MELANOMA
     Dosage: 240 MG, Q2W
     Route: 041
     Dates: start: 20190618, end: 20190813
  23. PREDNISOLONE. [Suspect]
     Active Substance: PREDNISOLONE
     Indication: RASH
     Dosage: 15 MG
     Route: 048
     Dates: start: 20191217, end: 20200106
  24. PREDNISOLONE. [Suspect]
     Active Substance: PREDNISOLONE
     Dosage: 7.5 MG
     Route: 048
     Dates: start: 20200120, end: 202001
  25. BRAFTOVI [Suspect]
     Active Substance: ENCORAFENIB
     Dosage: 300 MG, EVERYDAY
     Route: 048
     Dates: start: 20200107, end: 20200122
  26. BRAFTOVI [Suspect]
     Active Substance: ENCORAFENIB
     Dosage: 450 MG, EVERYDAY
     Dates: start: 20200331, end: 20200428
  27. DABRAFENIB MESILATE [Suspect]
     Active Substance: DABRAFENIB MESYLATE
     Dosage: 200 MG, EVERYDAY
     Route: 065
     Dates: start: 20190917, end: 2019
  28. LEVOTHYROXINE NA [Concomitant]
     Active Substance: LEVOTHYROXINE SODIUM
     Indication: THYROIDITIS
     Dosage: UNK
     Route: 048
  29. MEKTOVI [Suspect]
     Active Substance: BINIMETINIB
     Dosage: 30 MG, Q12H
     Route: 048
     Dates: start: 20200503, end: 20200507
  30. MEKTOVI [Suspect]
     Active Substance: BINIMETINIB
     Dosage: 30 MG, Q12H
     Route: 048
     Dates: start: 20200511, end: 20201126
  31. PREDNISOLONE. [Suspect]
     Active Substance: PREDNISOLONE
     Dosage: 5.0 MG
     Route: 048
     Dates: start: 202001
  32. ALFACALCIDOL [Concomitant]
     Active Substance: ALFACALCIDOL
     Indication: OSTEOPOROSIS PROPHYLAXIS
     Dosage: UNK
     Route: 048

REACTIONS (14)
  - Hepatic function abnormal [Recovered/Resolved]
  - Macular detachment [Recovering/Resolving]
  - Rhabdomyolysis [Recovered/Resolved]
  - Diarrhoea [Recovered/Resolved]
  - Blood lactate dehydrogenase increased [Recovered/Resolved]
  - Thyroid disorder [Recovered/Resolved]
  - Disseminated intravascular coagulation [Recovered/Resolved]
  - Renal impairment [Recovered/Resolved]
  - Rash [Recovered/Resolved]
  - Anaemia [Recovered/Resolved]
  - Flatulence [Recovered/Resolved]
  - Blood lactate dehydrogenase increased [Unknown]
  - Leukoderma [Not Recovered/Not Resolved]
  - Pyrexia [Recovered/Resolved]

NARRATIVE: CASE EVENT DATE: 20190910
